FAERS Safety Report 9439640 (Version 1)
Quarter: 2013Q3

REPORT INFORMATION
  Report Type: Spontaneous
  Country: US (occurrence: US)
  Receive Date: 20130805
  Receipt Date: 20130805
  Transmission Date: 20140515
  Serious: No
  Sender: FDA-Public Use
  Company Number: US-PFIZER INC-2013224952

PATIENT
  Age: 63 Year
  Sex: Female

DRUGS (12)
  1. XELJANZ [Suspect]
     Indication: RHEUMATOID ARTHRITIS
     Dosage: 5 MG, 2X/DAY
     Route: 048
     Dates: start: 20130430, end: 20130725
  2. CELEBREX [Concomitant]
     Dosage: 200 MG, UNK
  3. METHOTREXATE [Concomitant]
     Dosage: 2.5 MG, UNK
  4. SYNTHROID [Concomitant]
     Dosage: 50 UG, UNK
  5. PRAVASTATIN SODIUM [Concomitant]
     Dosage: 20 MG, UNK
  6. FOLIC ACID [Concomitant]
     Dosage: 1 MG, UNK
  7. NEXIUM [Concomitant]
     Dosage: 40 MG, UNK
  8. VITAMIN D3 [Concomitant]
     Dosage: 5000 IU, UNK
  9. DOXYCYCLINE HYCLATE [Concomitant]
     Dosage: 100 MG, UNK
  10. CALCIUM [Concomitant]
     Dosage: 1200 MG, UNK
  11. BIOTIN [Concomitant]
     Dosage: 1000 UG, UNK
  12. OMEGA 3 [Concomitant]
     Dosage: UNK

REACTIONS (1)
  - White blood cell count decreased [Unknown]
